FAERS Safety Report 6566098-X (Version None)
Quarter: 2010Q1

REPORT INFORMATION
  Report Type: 
  Country: None (occurrence: None)
  Receive Date: 20100202
  Receipt Date: 20100118
  Transmission Date: 20100710
  Serious: No
  Sender: FDA-Public Use
  Company Number: US-JNJFOC-20100108216

PATIENT
  Sex: Female
  Weight: 48.99 kg

DRUGS (13)
  1. DURAGESIC-100 [Suspect]
     Indication: BACK PAIN
     Route: 062
  2. FOLIC ACID [Concomitant]
     Indication: CROHN'S DISEASE
     Route: 048
  3. ZITHROMAX [Concomitant]
     Indication: MYCOBACTERIAL INFECTION
     Route: 048
  4. ETHAMBUTOL HYDROCHLORIDE [Concomitant]
     Indication: MYCOBACTERIAL INFECTION
     Route: 048
  5. RIFAMPIN [Concomitant]
     Indication: MYCOBACTERIAL INFECTION
     Route: 048
  6. NEXIUM [Concomitant]
     Indication: GASTROOESOPHAGEAL REFLUX DISEASE
     Route: 048
  7. SYNTHROID [Concomitant]
     Indication: THYROID DISORDER
     Route: 048
  8. SINGULAIR [Concomitant]
     Route: 048
  9. CRESTOR [Concomitant]
  10. NEURONTIN [Concomitant]
     Indication: NEURALGIA
     Route: 048
  11. ASACOL [Concomitant]
     Indication: CROHN'S DISEASE
     Route: 048
  12. CELEBREX [Concomitant]
     Route: 048
  13. SULFASALAZINE [Concomitant]
     Indication: CROHN'S DISEASE
     Route: 048

REACTIONS (3)
  - DRUG INEFFECTIVE [None]
  - TREATMENT NONCOMPLIANCE [None]
  - WITHDRAWAL SYNDROME [None]
